FAERS Safety Report 9051841 (Version 1)
Quarter: 2013Q1

REPORT INFORMATION
  Report Type: Spontaneous
  Country: US (occurrence: US)
  Receive Date: 20130207
  Receipt Date: 20130207
  Transmission Date: 20140127
  Serious: Yes (Hospitalization)
  Sender: FDA-Public Use
  Company Number: US-BAYER-2013-015125

PATIENT
  Age: 43 Year
  Sex: Female
  Weight: 80.27 kg

DRUGS (4)
  1. YASMIN [Suspect]
     Indication: ENDOMETRIOSIS
  2. OCELLA [Suspect]
  3. ROCEPHIN [Concomitant]
  4. ZITHROMAX [Concomitant]

REACTIONS (1)
  - Pulmonary embolism [None]
